FAERS Safety Report 15712648 (Version 1)
Quarter: 2018Q4

REPORT INFORMATION
  Report Type: Spontaneous
  Country: US (occurrence: US)
  Receive Date: 20181128
  Receipt Date: 20181128
  Transmission Date: 20190205
  Serious: No
  Sender: FDA-Public Use
  Company Number: None

PATIENT
  Age: 72 Year
  Sex: Female

DRUGS (1)
  1. VOTRIENT [Suspect]
     Active Substance: PAZOPANIB HYDROCHLORIDE
     Route: 048
     Dates: start: 201611

REACTIONS (6)
  - Swelling face [None]
  - Epistaxis [None]
  - Pain [None]
  - Eye swelling [None]
  - Feeling hot [None]
  - Infection [None]

NARRATIVE: CASE EVENT DATE: 20181125
